FAERS Safety Report 6103280-X (Version None)
Quarter: 2009Q1

REPORT INFORMATION
  Report Type: 
  Country: None (occurrence: None)
  Receive Date: 20090305
  Receipt Date: 20090224
  Transmission Date: 20090719
  Serious: Yes (Other)
  Sender: FDA-Public Use
  Company Number: US-BAYER-200911408NA

PATIENT
  Age: 29 Year
  Sex: Female
  Weight: 63 kg

DRUGS (2)
  1. MIRENA [Suspect]
     Indication: CONTRACEPTION
     Route: 015
     Dates: start: 20081118, end: 20090114
  2. MOTRIN [Concomitant]
     Indication: INTRA-UTERINE CONTRACEPTIVE DEVICE INSERTION
     Route: 048
     Dates: start: 20081112, end: 20081112

REACTIONS (5)
  - HAEMORRHAGIC OVARIAN CYST [None]
  - IUCD COMPLICATION [None]
  - IUD MIGRATION [None]
  - PELVIC PAIN [None]
  - VAGINAL HAEMORRHAGE [None]
